APPROVED DRUG PRODUCT: LIBRITABS
Active Ingredient: CHLORDIAZEPOXIDE
Strength: 25MG
Dosage Form/Route: TABLET;ORAL
Application: A085488 | Product #001
Applicant: VALEANT PHARMACEUTICALS INTERNATIONAL
Approved: Approved Prior to Jan 1, 1982 | RLD: No | RS: No | Type: DISCN